FAERS Safety Report 6686657-3 (Version None)
Quarter: 2010Q2

REPORT INFORMATION
  Report Type: 
  Country: None (occurrence: None)
  Receive Date: 20100415
  Receipt Date: 20100330
  Transmission Date: 20101027
  Serious: Yes (Other)
  Sender: FDA-Public Use
  Company Number: AVE_01751_2010

PATIENT
  Age: 22 Year
  Sex: Female

DRUGS (1)
  1. NICOTINE [Suspect]
     Indication: SMOKING CESSATION THERAPY
     Dosage: 7 MG, USED ONLY 1 PATCH TRANSDERMAL
     Route: 062
     Dates: start: 20090701, end: 20090701

REACTIONS (7)
  - APPLICATION SITE PAIN [None]
  - APPLICATION SITE VESICLES [None]
  - HYPERHIDROSIS [None]
  - MALAISE [None]
  - NAUSEA [None]
  - PALLOR [None]
  - PALPITATIONS [None]
